FAERS Safety Report 9170788 (Version 4)
Quarter: 2013Q3

REPORT INFORMATION
  Report Type: Spontaneous
  Country: PT (occurrence: None)
  Receive Date: 20130312
  Receipt Date: 20130821
  Transmission Date: 20140515
  Serious: Yes (Hospitalization, Disabling)
  Sender: FDA-Public Use
  Company Number: 2013P1002884

PATIENT
  Age: 74 Year
  Sex: Female

DRUGS (1)
  1. AMIODARONE [Suspect]
     Indication: TACHYARRHYTHMIA
     Route: 042
     Dates: start: 20130128, end: 20130128

REACTIONS (2)
  - Central venous catheterisation [None]
  - Infusion site phlebitis [None]
